FAERS Safety Report 7960058-X (Version None)
Quarter: 2011Q4

REPORT INFORMATION
  Report Type: 
  Country: None (occurrence: None)
  Receive Date: 20111206
  Receipt Date: 20111123
  Transmission Date: 20120403
  Serious: Yes (Hospitalization)
  Sender: FDA-Public Use
  Company Number: PHHY2011SG100012

PATIENT
  Sex: Female

DRUGS (1)
  1. GLEEVEC [Suspect]
     Indication: CHRONIC MYELOID LEUKAEMIA
     Dosage: 400 MG, DAILY
     Route: 065
     Dates: start: 20111001

REACTIONS (5)
  - ABDOMINAL PAIN [None]
  - ELECTROLYTE IMBALANCE [None]
  - GASTROENTERITIS [None]
  - VOMITING [None]
  - DIARRHOEA [None]
